FAERS Safety Report 17714413 (Version 2)
Quarter: 2020Q2

REPORT INFORMATION
  Report Type: Spontaneous
  Country: ES (occurrence: ES)
  Receive Date: 20200427
  Receipt Date: 20200522
  Transmission Date: 20200714
  Serious: Yes (Other)
  Sender: FDA-Public Use
  Company Number: ES-JNJFOC-20200428075

PATIENT
  Sex: Male

DRUGS (20)
  1. RISPERDAL [Suspect]
     Active Substance: RISPERIDONE
     Indication: HALLUCINATION
  2. INVEGA [Suspect]
     Active Substance: PALIPERIDONE
     Indication: SUBSTANCE-INDUCED PSYCHOTIC DISORDER
  3. METHADONE [Concomitant]
     Active Substance: METHADONE HYDROCHLORIDE
     Indication: SUBSTANCE-INDUCED PSYCHOTIC DISORDER
  4. RISPERDAL [Suspect]
     Active Substance: RISPERIDONE
     Indication: SUBSTANCE-INDUCED PSYCHOTIC DISORDER
  5. INVEGA [Suspect]
     Active Substance: PALIPERIDONE
     Indication: BIPOLAR I DISORDER
     Dosage: UNTIL 6 MG/DAY
     Route: 065
  6. OLANZAPINE. [Suspect]
     Active Substance: OLANZAPINE
     Indication: SUBSTANCE-INDUCED PSYCHOTIC DISORDER
     Dosage: 15 MILLIGRAM DAILY
     Route: 065
  7. ASENAPINE. [Suspect]
     Active Substance: ASENAPINE
     Indication: SUBSTANCE-INDUCED PSYCHOTIC DISORDER
     Dosage: 10 MILLIGRAM DAILY
     Route: 065
  8. RISPERDAL [Suspect]
     Active Substance: RISPERIDONE
     Indication: HALLUCINATION, AUDITORY
  9. INVEGA [Suspect]
     Active Substance: PALIPERIDONE
     Indication: BIPOLAR I DISORDER
  10. QUETIAPINE. [Suspect]
     Active Substance: QUETIAPINE
     Indication: SUBSTANCE-INDUCED PSYCHOTIC DISORDER
     Dosage: 250 MILLIGRAM DAILY
     Route: 065
  11. PREGABALIN. [Concomitant]
     Active Substance: PREGABALIN
     Indication: ANXIETY DISORDER
  12. RISPERDAL [Suspect]
     Active Substance: RISPERIDONE
     Indication: PERSECUTORY DELUSION
     Dosage: UNTIL 3 MG/DAY
     Route: 065
  13. RISPERDAL [Suspect]
     Active Substance: RISPERIDONE
     Indication: PSYCHOTIC SYMPTOM
     Route: 065
  14. RISPERDAL [Suspect]
     Active Substance: RISPERIDONE
     Indication: RESTLESSNESS
  15. INVEGA [Suspect]
     Active Substance: PALIPERIDONE
     Indication: MANIA
  16. INVEGA [Suspect]
     Active Substance: PALIPERIDONE
     Indication: SCHIZOAFFECTIVE DISORDER
  17. INVEGA [Suspect]
     Active Substance: PALIPERIDONE
     Indication: SCHIZOPHRENIA
  18. METHADONE [Concomitant]
     Active Substance: METHADONE HYDROCHLORIDE
     Indication: SUBSTANCE USE DISORDER
     Route: 065
  19. RISPERDAL [Suspect]
     Active Substance: RISPERIDONE
     Indication: IRRITABILITY
  20. PREGABALIN. [Suspect]
     Active Substance: PREGABALIN
     Indication: ANXIETY DISORDER
     Dosage: PREGABALIN HAS BEEN PRESCRIBED IN SOME PERIODS?150 MILLIGRAM DAILY
     Route: 065

REACTIONS (2)
  - Drug intolerance [Unknown]
  - Extrapyramidal disorder [Unknown]
